FAERS Safety Report 8826191 (Version 2)
Quarter: 2013Q2

REPORT INFORMATION
  Report Type: Report from Study
  Country: CA (occurrence: CA)
  Receive Date: 20121005
  Receipt Date: 20130427
  Transmission Date: 20140414
  Serious: Yes (Other)
  Sender: FDA-Public Use
  Company Number: CA-ROCHE-1138063

PATIENT
  Age: 56 Year
  Sex: Male
  Weight: 99.8 kg

DRUGS (6)
  1. RITUXAN [Suspect]
     Indication: RHEUMATOID ARTHRITIS
     Dosage: DAY 15 INFUSION ON 04/DEC/2007
     Route: 042
     Dates: start: 20071119
  2. RITUXAN [Suspect]
     Dosage: DAY 15 INFUSION ON 18/OCT/2011
     Route: 042
     Dates: start: 20111003
  3. OXYCOCET [Concomitant]
  4. METHYLPREDNISOLONE [Concomitant]
     Route: 042
     Dates: start: 20100610
  5. DIPHENHYDRAMINE HCL [Concomitant]
     Indication: PREMEDICATION
     Route: 048
     Dates: start: 20121004
  6. ACETAMINOPHEN [Concomitant]
     Indication: PREMEDICATION
     Route: 048
     Dates: start: 20121004

REACTIONS (2)
  - Hepatitis [Not Recovered/Not Resolved]
  - Rheumatoid arthritis [Not Recovered/Not Resolved]
